FAERS Safety Report 7031441-4 (Version None)
Quarter: 2010Q4

REPORT INFORMATION
  Report Type: 
  Country: None (occurrence: None)
  Receive Date: 20101006
  Receipt Date: 20100924
  Transmission Date: 20110411
  Serious: Yes (Other)
  Sender: FDA-Public Use
  Company Number: US-WATSON-2010-13115

PATIENT
  Age: 43 Year
  Sex: Female

DRUGS (3)
  1. NEFAZODONE HYDROCHLORIDE (WATSON LABORATORIES) [Suspect]
     Indication: DEPRESSION
     Dosage: 600 MG, DAILY
     Route: 048
  2. TRIAMCINOLONE [Suspect]
     Indication: ANTIINFLAMMATORY THERAPY
     Dosage: 20 MG, SINGLE
     Route: 024
     Dates: start: 20051206
  3. TRIAMCINOLONE [Suspect]
     Dosage: 20 MG, SINGLE
     Dates: start: 20051201

REACTIONS (3)
  - CUSHING'S SYNDROME [None]
  - INHIBITORY DRUG INTERACTION [None]
  - SECONDARY ADRENOCORTICAL INSUFFICIENCY [None]
